FAERS Safety Report 8985321 (Version 1)
Quarter: 2012Q4

REPORT INFORMATION
  Report Type: 
  Country: US (occurrence: US)
  Receive Date: 20121226
  Receipt Date: 20121226
  Transmission Date: 20130627
  Serious: No
  Sender: FDA-Public Use
  Company Number: US-BAYER-2012-134826

PATIENT
  Age: 86 Year
  Sex: Male
  Weight: 78.01 kg

DRUGS (3)
  1. ALEVE CAPLET/TABLET,MIDOL EXTENDED RELIEF CAPLET [Suspect]
     Indication: ARTHRITIS
     Dosage: 1 DF, TID
     Dates: start: 201212, end: 20121218
  2. POTASSIUM [Concomitant]
  3. VITAMIN D [Concomitant]

REACTIONS (1)
  - Drug ineffective [None]
